FAERS Safety Report 12743506 (Version 2)
Quarter: 2019Q4

REPORT INFORMATION
  Report Type: Spontaneous
  Country: DE (occurrence: DE)
  Receive Date: 20160914
  Receipt Date: 20191022
  Transmission Date: 20200122
  Serious: Yes (Other)
  Sender: FDA-Public Use
  Company Number: DE-TEVA-2016-00028

PATIENT
  Sex: Female

DRUGS (1)
  1. MOXIFLOXACIN-ACTAVIS 400MG FILMTABLETTEN [Suspect]
     Active Substance: MOXIFLOXACIN
     Route: 048
     Dates: start: 20151214, end: 20151220

REACTIONS (2)
  - Maternal exposure during pregnancy [Unknown]
  - Abortion spontaneous [Unknown]

NARRATIVE: CASE EVENT DATE: 2016
